FAERS Safety Report 10080620 (Version 1)
Quarter: 2014Q2

REPORT INFORMATION
  Report Type: Spontaneous
  Country: US (occurrence: US)
  Receive Date: 20140416
  Receipt Date: 20140416
  Transmission Date: 20141212
  Serious: No
  Sender: FDA-Public Use
  Company Number: US-JNJFOC-20140404854

PATIENT
  Sex: Female

DRUGS (3)
  1. DURAGESIC [Suspect]
     Indication: ARTHROPATHY
     Route: 062
  2. DURAGESIC [Suspect]
     Indication: ARTHROPATHY
     Route: 062
  3. NEURONTIN [Concomitant]
     Route: 048
     Dates: start: 2013

REACTIONS (3)
  - Wrong technique in drug usage process [Not Recovered/Not Resolved]
  - Product adhesion issue [Unknown]
  - Mobility decreased [Not Recovered/Not Resolved]
